FAERS Safety Report 15234890 (Version 5)
Quarter: 2021Q1

REPORT INFORMATION
  Report Type: Spontaneous
  Country: CO (occurrence: CO)
  Receive Date: 20180803
  Receipt Date: 20210201
  Transmission Date: 20210419
  Serious: Yes (Disabling, Other)
  Sender: FDA-Public Use
  Company Number: CO-REGENERON PHARMACEUTICALS, INC.-2018-32169

PATIENT

DRUGS (5)
  1. EYLEA [Suspect]
     Active Substance: AFLIBERCEPT
     Dosage: 100 ?L, ONCE THIRD AND LAST INJECTION
     Route: 031
     Dates: start: 20180712, end: 20180712
  2. EYLEA [Suspect]
     Active Substance: AFLIBERCEPT
     Dosage: 100 ?L, ONCE SECOND INJECTION
     Route: 031
  3. LOVASTATINE [Concomitant]
     Active Substance: LOVASTATIN
     Indication: DYSLIPIDAEMIA
     Dosage: UNK
  4. EYLEA [Suspect]
     Active Substance: AFLIBERCEPT
     Indication: RETINAL VEIN OCCLUSION
     Dosage: 100 ?L, ONCE FIRST INJECTION
     Route: 031
     Dates: start: 201802, end: 201802
  5. MOXIFLOXACIN. [Concomitant]
     Active Substance: MOXIFLOXACIN
     Indication: INJECTION
     Dosage: 1 GTT, ONCE; RIGHT EYE
     Dates: start: 20180712, end: 20180712

REACTIONS (6)
  - Product prescribing issue [Unknown]
  - Product monitoring error [Unknown]
  - Overdose [Unknown]
  - Blindness unilateral [Not Recovered/Not Resolved]
  - Retinal artery thrombosis [Unknown]
  - Product tampering [Unknown]

NARRATIVE: CASE EVENT DATE: 201802
